FAERS Safety Report 15923849 (Version 1)
Quarter: 2019Q1

REPORT INFORMATION
  Report Type: Report from Study
  Country: IN (occurrence: IN)
  Receive Date: 20190206
  Receipt Date: 20190206
  Transmission Date: 20190417
  Serious: Yes (Hospitalization, Other)
  Sender: FDA-Public Use
  Company Number: IN-MACLEODS PHARMACEUTICALS US LTD-MAC2019019953

PATIENT

DRUGS (1)
  1. UROREC? (SILODOSIN) [Suspect]
     Active Substance: SILODOSIN
     Indication: DRUG TOLERANCE
     Dosage: 4 MILLIGRAM, SINGLE, WITH 240 ML OF WATER, RECORDATI IRELAND LTD
     Route: 048
     Dates: start: 20190112, end: 20190112

REACTIONS (11)
  - Urinary tract infection [Recovered/Resolved]
  - Abdominal pain lower [Recovered/Resolved]
  - Nausea [Recovered/Resolved]
  - Haematuria [Recovered/Resolved]
  - Decreased appetite [Recovered/Resolved]
  - Haematochezia [Recovered/Resolved]
  - Diarrhoea [Recovered/Resolved]
  - Gastroenteritis shigella [Recovered/Resolved]
  - Vomiting [Recovered/Resolved]
  - Dysuria [Recovered/Resolved]
  - Orchitis [Recovered/Resolved]

NARRATIVE: CASE EVENT DATE: 20190115
